FAERS Safety Report 9078941 (Version 2)
Quarter: 2013Q1

REPORT INFORMATION
  Report Type: Spontaneous
  Country: JP (occurrence: JP)
  Receive Date: 20130215
  Receipt Date: 20130305
  Transmission Date: 20140127
  Serious: Yes (Other)
  Sender: FDA-Public Use
  Company Number: JP-OTSUKA-JP-2013-10362

PATIENT
  Age: 83 Year
  Sex: Male

DRUGS (11)
  1. SAMSCA [Suspect]
     Dosage: 15 MG MILLIGRAM(S), QD
     Route: 048
  2. LANIRAPID [Concomitant]
     Dosage: 0.025 MG MILLIGRAM(S), DAILY DOSE
     Route: 048
  3. FUROSEMIDE [Concomitant]
     Dosage: 40 MG MILLIGRAM(S), DAILY DOSE
     Route: 048
  4. FUROSEMIDE [Concomitant]
     Dosage: 20 MG MILLIGRAM(S), DAILY DOSE
     Route: 048
  5. ZYLORIC [Concomitant]
     Dosage: 100 MG MILLIGRAM(S), DAILY DOSE
     Route: 048
  6. THYRADIN S [Concomitant]
     Dosage: 25 MCG, DAILY DOSE
     Route: 048
  7. RABEPRAZOLE SODIUM [Concomitant]
     Dosage: 10 MG MILLIGRAM(S), DAILY DOSE
     Route: 048
  8. SENNOSIDE [Concomitant]
     Dosage: 24 MG MILLIGRAM(S), DAILY DOSE
     Route: 048
  9. PIMOBENDAN [Concomitant]
     Dosage: 5 MG MILLIGRAM(S), DAILY DOSE
     Route: 048
  10. PLAVIX [Concomitant]
     Dosage: 75 MG MILLIGRAM(S), DAILY DOSE
     Route: 048
  11. ALENAPION [Concomitant]
     Dosage: 40 MG MILLIGRAM(S), DAILY DOSE
     Route: 048

REACTIONS (1)
  - Renal impairment [Unknown]
